FAERS Safety Report 16935805 (Version 1)
Quarter: 2019Q4

REPORT INFORMATION
  Report Type: Other
  Country: ES (occurrence: ES)
  Receive Date: 20191018
  Receipt Date: 20191018
  Transmission Date: 20200122
  Serious: Yes (Life-Threatening, Hospitalization)
  Sender: FDA-Public Use
  Company Number: ES-APOTEX-2019AP023525

PATIENT
  Age: 32 Year
  Sex: Male

DRUGS (3)
  1. MAGNESIO /01486801/ [Suspect]
     Active Substance: MAGNESIUM
     Indication: INTENTIONAL OVERDOSE
     Dosage: 18 G, SINGLE, IN TOTAL
     Route: 048
     Dates: start: 20190410, end: 20190410
  2. ESCITALOPRAM [Suspect]
     Active Substance: ESCITALOPRAM OXALATE
     Indication: INTENTIONAL OVERDOSE
     Dosage: 560 MG, SINGLE, 1 TOTAL
     Route: 048
     Dates: start: 20190410, end: 20190410
  3. ARMOLIPID PLUS [Suspect]
     Active Substance: DIETARY SUPPLEMENT
     Indication: INTENTIONAL OVERDOSE
     Dosage: 6 G, SINGLE, IN TOTAL
     Route: 048
     Dates: start: 20190410, end: 20190410

REACTIONS (2)
  - Intentional overdose [Recovered/Resolved]
  - Hypertransaminasaemia [Recovered/Resolved]

NARRATIVE: CASE EVENT DATE: 20190410
